FAERS Safety Report 8612749-5 (Version None)
Quarter: 2012Q3

REPORT INFORMATION
  Report Type: 
  Country: None (occurrence: None)
  Receive Date: 20120822
  Receipt Date: 20110826
  Transmission Date: 20120928
  Serious: No
  Sender: FDA-Public Use
  Company Number: US-ASTRAZENECA-2011SE51632

PATIENT
  Age: 78 Year
  Sex: Male
  Weight: 46.7 kg

DRUGS (5)
  1. SYMBICORT [Suspect]
     Indication: EMPHYSEMA
     Dosage: 160/4.5 MG UNKNOWN FREQUENCY
     Route: 055
  2. SYMBICORT [Suspect]
     Dosage: 80/4.5 MG UNKNOWN FREQUENCY
     Route: 055
     Dates: end: 20100701
  3. SYMBICORT [Suspect]
     Dosage: EXPIRED INHALER, ONE PUFF-FREQUENCY UNKNOWN
     Route: 055
     Dates: start: 20110825
  4. ALBUTEROL [Concomitant]
  5. SYMBICORT [Suspect]
     Dosage: DOSE AND FREQUENCY UNKNOWN
     Route: 055
     Dates: start: 20110825

REACTIONS (6)
  - DIZZINESS [None]
  - EXPIRED DRUG ADMINISTERED [None]
  - OFF LABEL USE [None]
  - DYSPNOEA [None]
  - NECK MASS [None]
  - DRUG INEFFECTIVE FOR UNAPPROVED INDICATION [None]
